FAERS Safety Report 6565292-1 (Version None)
Quarter: 2010Q1

REPORT INFORMATION
  Report Type: 
  Country: None (occurrence: None)
  Receive Date: 20100201
  Receipt Date: 20100126
  Transmission Date: 20100710
  Serious: Yes (Hospitalization)
  Sender: FDA-Public Use
  Company Number: CH-ROCHE-681800

PATIENT
  Age: 86 Year
  Sex: Female

DRUGS (11)
  1. ROCEPHIN [Suspect]
     Indication: DRUG USE FOR UNKNOWN INDICATION
     Route: 065
     Dates: start: 20091208, end: 20091214
  2. AUGMENTIN [Suspect]
     Indication: BACTERIAL INFECTION
     Route: 041
     Dates: start: 20091215, end: 20091218
  3. MARCUMAR [Concomitant]
  4. METOPROLOL TARTRATE [Concomitant]
  5. SPIRONOLACTONE [Concomitant]
  6. TORSEMIDE [Concomitant]
  7. TRIATEC [Concomitant]
     Dosage: REGIMEN: 25 MG 0-0-1/2
  8. INSULIN MIXTARD 30 HM [Concomitant]
     Dosage: 20U-0-10U
  9. CALCIUM CARBONATE/VITAMIN D3 [Concomitant]
     Dosage: 1-0-0
  10. TRAMAL [Concomitant]
  11. ERGOCALCIFEROL [Concomitant]
     Dosage: 10-0-0

REACTIONS (3)
  - BLOOD BILIRUBIN INCREASED [None]
  - CHOLESTATIC LIVER INJURY [None]
  - HEPATOCELLULAR INJURY [None]
